FAERS Safety Report 7461407-1 (Version None)
Quarter: 2011Q2

REPORT INFORMATION
  Report Type: 
  Country: None (occurrence: None)
  Receive Date: 20110428
  Receipt Date: 20110228
  Transmission Date: 20111010
  Serious: Yes (Other)
  Sender: FDA-Public Use
  Company Number: 2011GW000052

PATIENT
  Age: 41 Year
  Sex: Female

DRUGS (1)
  1. ALDARA [Suspect]
     Indication: BASAL CELL CARCINOMA
     Dosage: 5 PCT;5XW;TOP
     Route: 061
     Dates: start: 20090131

REACTIONS (6)
  - COLITIS [None]
  - COELIAC DISEASE [None]
  - FURUNCLE [None]
  - APPLICATION SITE SCAB [None]
  - GASTROINTESTINAL DISORDER [None]
  - APPLICATION SITE ERYTHEMA [None]
